FAERS Safety Report 24535823 (Version 2)
Quarter: 2024Q4

REPORT INFORMATION
  Report Type: Spontaneous
  Country: US (occurrence: US)
  Receive Date: 20241022
  Receipt Date: 20241028
  Transmission Date: 20250114
  Serious: Yes (Other)
  Sender: PFIZER
  Company Number: US-MLMSERVICE-20241010-PI223135-00271-1

PATIENT
  Age: 63 Year
  Sex: Female

DRUGS (7)
  1. METHOTREXATE SODIUM [Suspect]
     Active Substance: METHOTREXATE SODIUM
     Indication: Systemic lupus erythematosus
     Dosage: WAS ON METHOTREXATE AND LATER DOSE INCREASED
  2. PREDNISONE [Suspect]
     Active Substance: PREDNISONE
     Indication: Systemic lupus erythematosus
     Dosage: 5 MG, 1X/DAY
  3. PREDNISONE [Suspect]
     Active Substance: PREDNISONE
     Dosage: DOSE INCREASED/ESCALATING IMMUNOSUPPRESSION
  4. PREDNISONE [Suspect]
     Active Substance: PREDNISONE
     Dosage: INCREASED ON DAY 35
  5. PREDNISONE [Suspect]
     Active Substance: PREDNISONE
     Dosage: INCREASED AGAIN ON DAY 51
  6. HYDROXYCHLOROQUINE [Suspect]
     Active Substance: HYDROXYCHLOROQUINE
     Indication: Systemic lupus erythematosus
     Dosage: UNK
  7. AZATHIOPRINE [Suspect]
     Active Substance: AZATHIOPRINE
     Indication: Systemic lupus erythematosus
     Dosage: WAS ON AZATHIOPRINE AND LATER DOSE INCREASED

REACTIONS (3)
  - Cutaneous tuberculosis [Unknown]
  - Atelectasis [Unknown]
  - Pulmonary fibrosis [Unknown]
